FAERS Safety Report 5398512-X (Version None)
Quarter: 2007Q3

REPORT INFORMATION
  Report Type: 
  Country: None (occurrence: None)
  Receive Date: 20070725
  Receipt Date: 20070711
  Transmission Date: 20080115
  Serious: Yes (Other)
  Sender: FDA-Public Use
  Company Number: GXKR2007US05918

PATIENT
  Age: 83 Year
  Sex: Male

DRUGS (2)
  1. AMANTADINE (NGX) (AMANTADINE) UNKNOWN [Suspect]
     Indication: PARKINSON'S DISEASE
     Dosage: 100 MG, QD,
  2. LEVODOPA-CARBIDOPA (NGX) (CARBIDOPA LEVODOPA) UNKNOWN, 25/100 MG [Suspect]
     Indication: PARKINSON'S DISEASE
     Dosage: 1 DF, TID

REACTIONS (5)
  - DRUG INTERACTION [None]
  - EXCORIATION [None]
  - FORMICATION [None]
  - PRURITUS [None]
  - SOMATIC DELUSION [None]
